FAERS Safety Report 18562546 (Version 1)
Quarter: 2020Q4

REPORT INFORMATION
  Report Type: Spontaneous
  Country: US (occurrence: US)
  Receive Date: 20201130
  Receipt Date: 20201130
  Transmission Date: 20210114
  Serious: No
  Sender: FDA-Public Use
  Company Number: US-ROCHE-2467116

PATIENT
  Sex: Female

DRUGS (7)
  1. AMLODIPINE BESYLATE. [Concomitant]
     Active Substance: AMLODIPINE BESYLATE
  2. LIPITOR [Concomitant]
     Active Substance: ATORVASTATIN CALCIUM
  3. BIOTIN [Concomitant]
     Active Substance: BIOTIN
  4. MAGNESIUM [Concomitant]
     Active Substance: MAGNESIUM
  5. OMEPRAZOLE. [Concomitant]
     Active Substance: OMEPRAZOLE
  6. LUCENTIS [Suspect]
     Active Substance: RANIBIZUMAB
     Indication: BENIGN NEOPLASM OF CHOROID
     Dosage: INJECT 0.5 MG 0.05 ML, INTRAVITREALLY INTO RIGHT EYE
     Route: 050
     Dates: start: 20181201
  7. NIACIN. [Concomitant]
     Active Substance: NIACIN

REACTIONS (2)
  - No adverse event [Unknown]
  - Drug ineffective [Unknown]
